FAERS Safety Report 4364775-2 (Version None)
Quarter: 2004Q2

REPORT INFORMATION
  Report Type: 
  Country: None (occurrence: None)
  Receive Date: 20040514
  Receipt Date: 20040113
  Transmission Date: 20050107
  Serious: Yes (Other)
  Sender: FDA-Public Use
  Company Number: WAES 0401USA00943

PATIENT
  Age: 46 Year
  Sex: Male

DRUGS (1)
  1. CRIXIVAN [Suspect]
     Dosage: 1000 MG/TID/PO
     Route: 048
     Dates: start: 19980101

REACTIONS (1)
  - SILENT MYOCARDIAL INFARCTION [None]
